FAERS Safety Report 4753626-X (Version None)
Quarter: 2005Q3

REPORT INFORMATION
  Report Type: 
  Country: None (occurrence: None)
  Receive Date: 20050824
  Receipt Date: 20050808
  Transmission Date: 20060218
  Serious: Yes (Other)
  Sender: FDA-Public Use
  Company Number: SP00478

PATIENT
  Age: 15 Year
  Sex: Male

DRUGS (2)
  1. COLAZAL [Suspect]
     Indication: COLITIS
     Dosage: 2.25G/TID, ORAL
     Route: 048
     Dates: start: 20050714, end: 20050715
  2. PREDNISOLONE [Concomitant]

REACTIONS (5)
  - ABDOMINAL PAIN [None]
  - DIARRHOEA HAEMORRHAGIC [None]
  - HEADACHE [None]
  - PAIN [None]
  - SWELLING FACE [None]
